FAERS Safety Report 4844130-9 (Version None)
Quarter: 2005Q4

REPORT INFORMATION
  Report Type: 
  Country: None (occurrence: None)
  Receive Date: 20051202
  Receipt Date: 20051121
  Transmission Date: 20060501
  Serious: Yes (Disabling)
  Sender: FDA-Public Use
  Company Number: US-ROCHE-425899

PATIENT
  Age: 36 Year
  Sex: Male

DRUGS (2)
  1. PEGASYS [Suspect]
     Dosage: ROUTE REPORTED AS INJECTABLE. COMPLETED FIRST COURSE.
     Route: 050
  2. COPEGUS [Suspect]
     Dosage: COMPLETED FIRST COURSE.
     Route: 048

REACTIONS (1)
  - LEUKOENCEPHALOPATHY [None]
